FAERS Safety Report 5508477-5 (Version None)
Quarter: 2007Q4

REPORT INFORMATION
  Report Type: 
  Country: None (occurrence: None)
  Receive Date: 20071105
  Receipt Date: 20071022
  Transmission Date: 20080405
  Serious: Yes (Hospitalization)
  Sender: FDA-Public Use
  Company Number: US021473

PATIENT
  Age: 30 Year
  Sex: Male
  Weight: 74.8435 kg

DRUGS (15)
  1. ACTIQ [Suspect]
     Indication: ABDOMINAL PAIN
     Dosage: 600 UG Q3HR BUCCAL
     Route: 002
     Dates: start: 20040101
  2. ACTIQ [Suspect]
     Indication: PROCTALGIA
     Dosage: 600 UG Q3HR BUCCAL
     Route: 002
     Dates: start: 20040101
  3. ACTIQ [Suspect]
     Indication: ABDOMINAL PAIN
     Dosage: 600 UG TID BUCCAL
     Route: 002
  4. ACTIQ [Suspect]
     Indication: PROCTALGIA
     Dosage: 600 UG TID BUCCAL
     Route: 002
  5. FENTANYL [Suspect]
     Indication: ABDOMINAL PAIN
     Dosage: 125 UG Q1HR TRANSDERMAL
     Route: 062
     Dates: start: 20040101
  6. FENTANYL [Suspect]
     Indication: PROCTALGIA
     Dosage: 125 UG Q1HR TRANSDERMAL
     Route: 062
     Dates: start: 20040101
  7. FENTANYL [Suspect]
     Indication: ABDOMINAL PAIN
     Dosage: 25 UG WEANING DOSAGE IN ANTICIPATION OF DISCONTINUATION Q1HR TRANSDERMAL
     Route: 062
  8. FENTANYL [Suspect]
     Indication: PROCTALGIA
     Dosage: 25 UG WEANING DOSAGE IN ANTICIPATION OF DISCONTINUATION Q1HR TRANSDERMAL
     Route: 062
  9. FENTANYL [Suspect]
     Indication: ABDOMINAL PAIN
     Dosage: 75 UG Q1HR TRANSDERMAL
     Route: 062
  10. FENTANYL [Suspect]
     Indication: PROCTALGIA
     Dosage: 75 UG Q1HR TRANSDERMAL
     Route: 062
  11. ADDERALL 10 [Suspect]
     Indication: DRUG WITHDRAWAL SYNDROME
     Dates: start: 20070201
  12. CYMBALTA [Suspect]
     Indication: DEPRESSION
     Dosage: 20 MG QD ORAL
     Route: 048
     Dates: start: 20040101
  13. DEPAKOTE [Concomitant]
  14. GEODON /01487002/ [Concomitant]
  15. VALIUM [Concomitant]

REACTIONS (6)
  - CONVULSION [None]
  - DRUG DEPENDENCE [None]
  - DRUG INTERACTION [None]
  - DRUG WITHDRAWAL SYNDROME [None]
  - INSOMNIA [None]
  - PHARMACEUTICAL PRODUCT COMPLAINT [None]
